FAERS Safety Report 13822309 (Version 1)
Quarter: 2017Q3

REPORT INFORMATION
  Report Type: Spontaneous
  Country: US (occurrence: US)
  Receive Date: 20170801
  Receipt Date: 20170801
  Transmission Date: 20171127
  Serious: No
  Sender: FDA-Public Use
  Company Number: US-IMPAX LABORATORIES, INC-2016-IPXL-02512

PATIENT
  Age: 21 Year
  Sex: Male
  Weight: 59 kg

DRUGS (2)
  1. ALBENZA [Suspect]
     Active Substance: ALBENDAZOLE
     Indication: ENTEROBIASIS
     Dosage: 200 MG, EVERY 2 WK, ONE TABLET
     Route: 065
     Dates: start: 20161123
  2. EMVERM [Suspect]
     Active Substance: MEBENDAZOLE
     Indication: ENTEROBIASIS
     Dosage: 100 MG, EVERY 2WK, 1 TABLET
     Route: 065
     Dates: start: 201611

REACTIONS (8)
  - Lethargy [Unknown]
  - Abdominal pain upper [Unknown]
  - Product use issue [Unknown]
  - Dizziness [Unknown]
  - Headache [Unknown]
  - Fatigue [Unknown]
  - Drug effect incomplete [Not Recovered/Not Resolved]
  - Off label use [Unknown]

NARRATIVE: CASE EVENT DATE: 2016
